FAERS Safety Report 4394566-8 (Version None)
Quarter: 2004Q3

REPORT INFORMATION
  Report Type: 
  Country: None (occurrence: None)
  Receive Date: 20040712
  Receipt Date: 20030711
  Transmission Date: 20050211
  Serious: Yes (Hospitalization)
  Sender: FDA-Public Use
  Company Number: FR-ROCHE-342101

PATIENT
  Age: 42 Year
  Sex: Male

DRUGS (7)
  1. ENFUVIRTIDE [Suspect]
     Indication: HIV INFECTION
     Route: 058
     Dates: start: 20030326
  2. DDI [Concomitant]
     Indication: HIV INFECTION
     Dates: start: 20020309
  3. 3TC [Concomitant]
     Indication: HIV INFECTION
     Dates: start: 20020309
  4. TENOFOVIR [Concomitant]
     Indication: HIV INFECTION
     Dates: start: 20020309
  5. SAQUINAVIR [Concomitant]
     Indication: HIV INFECTION
     Dates: start: 20020309
  6. LOPINAVIR/RITONAVIR [Concomitant]
     Indication: HIV INFECTION
     Dates: start: 20020309
  7. NEVIRAPINE [Concomitant]
     Indication: HIV INFECTION
     Dates: start: 20020309

REACTIONS (4)
  - COUGH [None]
  - LUNG DISORDER [None]
  - PYREXIA [None]
  - RALES [None]
